FAERS Safety Report 4824636-9 (Version None)
Quarter: 2005Q4

REPORT INFORMATION
  Report Type: 
  Country: None (occurrence: None)
  Receive Date: 20051110
  Receipt Date: 20051101
  Transmission Date: 20060501
  Serious: Yes (Other)
  Sender: FDA-Public Use
  Company Number: JP-BRISTOL-MYERS SQUIBB COMPANY-13167770

PATIENT
  Age: 49 Year
  Sex: Female

DRUGS (1)
  1. KENACORT-A [Suspect]
     Indication: TENOSYNOVITIS
     Route: 052
     Dates: start: 20050929, end: 20050929

REACTIONS (6)
  - ARTHRALGIA [None]
  - CONJUNCTIVITIS [None]
  - FATIGUE [None]
  - GLOSSITIS [None]
  - HYPOAESTHESIA [None]
  - MENSTRUAL DISORDER [None]
